FAERS Safety Report 16461545 (Version 1)
Quarter: 2019Q2

REPORT INFORMATION
  Report Type: Other
  Country: GB (occurrence: GB)
  Receive Date: 20190621
  Receipt Date: 20190621
  Transmission Date: 20190711
  Serious: Yes (Other)
  Sender: FDA-Public Use
  Company Number: GB-CELLTRION INC.-2019GB020083

PATIENT

DRUGS (12)
  1. FILGRASTIM [Concomitant]
     Active Substance: FILGRASTIM
     Dosage: 300 UG, FOR 7 DAYS 24 HOURS POST CHEMOTHERAPY
     Route: 058
     Dates: start: 20161231
  2. TRASTUZUMAB (UNKNOWN) [Suspect]
     Active Substance: TRASTUZUMAB
     Dosage: 336 MG EVERY 3 WEEKS, MODIFIED DUE TO WEIGHT LOSS
     Route: 042
     Dates: start: 20170301, end: 20170301
  3. TRASTUZUMAB (UNKNOWN) [Suspect]
     Active Substance: TRASTUZUMAB
     Dosage: 315 MG EVERY 3 WEEKS, MODIFIED DUE TO WEIGHT INCREASE
     Route: 042
     Dates: start: 20170322
  4. TRASTUZUMAB (UNKNOWN) [Suspect]
     Active Substance: TRASTUZUMAB
     Indication: HER-2 POSITIVE BREAST CANCER
     Dosage: LOADING DOSE
     Route: 042
     Dates: start: 20161115, end: 20161115
  5. DOCETAXEL. [Suspect]
     Active Substance: DOCETAXEL
     Indication: HER-2 POSITIVE BREAST CANCER
     Dosage: 96 MG EVERY 3 WEEKS (6 CYCLES, PLANNED NUMBER OF CYCLES COMPLETED)
     Route: 042
     Dates: start: 20161116, end: 20170301
  6. PERTUZUMAB. [Suspect]
     Active Substance: PERTUZUMAB
     Dosage: 420 MG 3 WEEK, 18 CYCLES
     Route: 042
     Dates: start: 20161207
  7. DEXAMETHASONE. [Concomitant]
     Active Substance: DEXAMETHASONE
     Dosage: 16 MG, DAILY (TO BE TAKEN AT EACH CHEMOTHERAPY CYCLE DAY BEFORE TREATMENT, DAY OF TREATMENT AND DAY
     Route: 048
     Dates: start: 20161229
  8. ADCAL (SOUTH KOREA) [Concomitant]
     Dosage: 3 G, DAILY
     Route: 048
     Dates: start: 20130613
  9. TRASTUZUMAB (UNKNOWN) [Suspect]
     Active Substance: TRASTUZUMAB
     Dosage: 357 MG EVERY 3 WEEKS
     Route: 042
     Dates: start: 20161207, end: 20170301
  10. PERTUZUMAB. [Suspect]
     Active Substance: PERTUZUMAB
     Indication: HER-2 POSITIVE BREAST CANCER
     Dosage: 840 MG LOADING DOSE
     Route: 042
     Dates: start: 20161115, end: 20161115
  11. OMEPRAZOLE. [Concomitant]
     Active Substance: OMEPRAZOLE
     Dosage: 20 MG, DAILY
     Route: 048
     Dates: start: 20161207
  12. LOPERAMIDE [Concomitant]
     Active Substance: LOPERAMIDE
     Dosage: 2 MG, AS NECESSARY
     Route: 048
     Dates: start: 20161207

REACTIONS (1)
  - Syncope [Recovered/Resolved]

NARRATIVE: CASE EVENT DATE: 20190117
